FAERS Safety Report 22104120 (Version 5)
Quarter: 2024Q1

REPORT INFORMATION
  Report Type: Report from Study
  Country: US (occurrence: US)
  Receive Date: 20230316
  Receipt Date: 20240108
  Transmission Date: 20240410
  Serious: No
  Sender: FDA-Public Use
  Company Number: US-002147023-NVSC2023US058858

PATIENT
  Sex: Female

DRUGS (2)
  1. KESIMPTA [Suspect]
     Active Substance: OFATUMUMAB
     Indication: Multiple sclerosis
     Dosage: UNK
     Route: 065
  2. KESIMPTA [Suspect]
     Active Substance: OFATUMUMAB
     Dosage: 20 MG, QMO
     Route: 058

REACTIONS (12)
  - Gait inability [Unknown]
  - Malaise [Unknown]
  - Pain [Unknown]
  - Dysphemia [Unknown]
  - Pain in extremity [Unknown]
  - Tremor [Unknown]
  - Back pain [Unknown]
  - Arthralgia [Unknown]
  - Speech disorder [Unknown]
  - Feeling abnormal [Unknown]
  - Injection site pain [Unknown]
  - Inappropriate schedule of product administration [Unknown]
